FAERS Safety Report 16641151 (Version 1)
Quarter: 2019Q3

REPORT INFORMATION
  Report Type: Spontaneous
  Country: US (occurrence: US)
  Receive Date: 20190613
  Receipt Date: 20190613
  Transmission Date: 20191004
  Serious: Yes (Hospitalization)
  Sender: FDA-Public Use
  Company Number: None

PATIENT
  Age: 49 Year
  Sex: Male
  Weight: 77.7 kg

DRUGS (3)
  1. PACLITAXEL PROTEIN-BOUND PARTICLES (ALBUMIN-BOUND) [Suspect]
     Active Substance: PACLITAXEL
     Dates: end: 20190505
  2. GEMCITABINE HYDROCHLORIDE. [Suspect]
     Active Substance: GEMCITABINE HYDROCHLORIDE
     Dates: end: 20190506
  3. CISPLATIN. [Suspect]
     Active Substance: CISPLATIN
     Dates: end: 20190506

REACTIONS (4)
  - Nausea [None]
  - Anaemia [None]
  - Abdominal pain [None]
  - Liver function test increased [None]

NARRATIVE: CASE EVENT DATE: 20190510
